FAERS Safety Report 6308858-6 (Version None)
Quarter: 2009Q3

REPORT INFORMATION
  Report Type: 
  Country: None (occurrence: None)
  Receive Date: 20090813
  Receipt Date: 20081104
  Transmission Date: 20100115
  Serious: No
  Sender: FDA-Public Use
  Company Number: US-ALLERGAN-0814050US

PATIENT
  Age: 71 Year
  Sex: Female

DRUGS (1)
  1. COMBIGAN [Suspect]
     Indication: GLAUCOMA
     Dosage: UNK, BID IN LEFT EYE
     Route: 047
     Dates: start: 20081001, end: 20081001

REACTIONS (4)
  - EYE PAIN [None]
  - EYE SWELLING [None]
  - EYELID IRRITATION [None]
  - EYELID OEDEMA [None]
